FAERS Safety Report 9299379 (Version 2)
Quarter: 2013Q2

REPORT INFORMATION
  Report Type: Spontaneous
  Country: US (occurrence: US)
  Receive Date: 20130520
  Receipt Date: 20130629
  Transmission Date: 20140414
  Serious: Yes (Hospitalization, Other)
  Sender: FDA-Public Use
  Company Number: US-B.I. PHARMACEUTICALS,INC./RIDGEFIELD-2013-BI-13782BP

PATIENT
  Age: 82 Year
  Sex: Female
  Weight: 56.7 kg

DRUGS (24)
  1. PRADAXA [Suspect]
     Indication: ANTICOAGULANT THERAPY
     Dosage: 300 MG
     Route: 048
     Dates: start: 20101126, end: 20111102
  2. PRADAXA [Suspect]
     Indication: ATRIAL FIBRILLATION
  3. ENTERIC COATED ASPIRIN [Concomitant]
     Indication: ATRIAL FIBRILLATION
     Dosage: 81 MG
     Route: 048
  4. IRON [Concomitant]
     Dosage: 450 MG
     Route: 048
  5. XOPENEX [Concomitant]
  6. BIOTIN [Concomitant]
  7. COUMADIN [Concomitant]
  8. ZYFLO [Concomitant]
  9. NASONEX [Concomitant]
     Indication: CHRONIC OBSTRUCTIVE PULMONARY DISEASE
     Dosage: 100 MCG
  10. ASTELIN [Concomitant]
  11. ESTER C [Concomitant]
  12. CALCIUM CARBONATE [Concomitant]
  13. PRAVACHOL [Concomitant]
     Indication: HYPERLIPIDAEMIA
     Dosage: 80 MG
     Route: 048
  14. ATROVENT [Concomitant]
  15. ALLEGRA [Concomitant]
     Dosage: 180 MG
     Route: 048
  16. SYNTHROID [Concomitant]
     Indication: HYPOTHYROIDISM
     Dosage: 0.1 MG
     Route: 048
  17. ZYRTEC [Concomitant]
     Indication: CHRONIC OBSTRUCTIVE PULMONARY DISEASE
  18. FISH OIL [Concomitant]
  19. VITAMIN B12 [Concomitant]
  20. KEFLEX [Concomitant]
  21. FLOVENT [Concomitant]
  22. VITAMIN E [Concomitant]
  23. MULTAQ [Concomitant]
  24. PREDNISONE [Concomitant]
     Dosage: 10 MG

REACTIONS (1)
  - Gastrointestinal haemorrhage [Unknown]
